FAERS Safety Report 7949923-7 (Version None)
Quarter: 2011Q4

REPORT INFORMATION
  Report Type: 
  Country: None (occurrence: None)
  Receive Date: 20111123
  Receipt Date: 20111110
  Transmission Date: 20120403
  Serious: Yes (Death)
  Sender: FDA-Public Use
  Company Number: 2011S1023809

PATIENT
  Age: 66 Year
  Sex: Male
  Weight: 90.2658 kg

DRUGS (12)
  1. FUROSEMIDE [Concomitant]
  2. CLONIDINE [Concomitant]
  3. METRONIDAZOLE [Concomitant]
  4. VIAGRA [Concomitant]
  5. QUININE SULFATE [Concomitant]
  6. TETRACYCLINE [Concomitant]
  7. ATENOLOL [Concomitant]
  8. KLOR-CON [Concomitant]
  9. NAPROXEN [Concomitant]
  10. NEXIUM [Concomitant]
  11. DIGITEK (DIGOXIN) TABLETS (0.125 MG) [Suspect]
     Indication: CARDIAC FAILURE CONGESTIVE
     Dosage: 0.125 MG;DAILY
     Dates: start: 20040817
  12. CAPTOPRIL [Concomitant]

REACTIONS (6)
  - CHEST PAIN [None]
  - CONFUSIONAL STATE [None]
  - DYSPNOEA [None]
  - TOXICITY TO VARIOUS AGENTS [None]
  - SWELLING [None]
  - MYOCARDIAL INFARCTION [None]
